FAERS Safety Report 6095889-7 (Version None)
Quarter: 2009Q1

REPORT INFORMATION
  Report Type: 
  Country: None (occurrence: None)
  Receive Date: 20090227
  Receipt Date: 20080708
  Transmission Date: 20090719
  Serious: No
  Sender: FDA-Public Use
  Company Number: A0736490A

PATIENT
  Age: 33 Year
  Sex: Female

DRUGS (3)
  1. LAMICTAL [Suspect]
     Dosage: 150MG PER DAY
     Route: 048
     Dates: start: 20080401
  2. PHENOBARBITAL TAB [Concomitant]
  3. CELEXA [Concomitant]

REACTIONS (4)
  - FOOD CRAVING [None]
  - MALAISE [None]
  - SPEECH DISORDER [None]
  - TREMOR [None]
